FAERS Safety Report 8929174 (Version 1)
Quarter: 2012Q4

REPORT INFORMATION
  Report Type: 
  Country: IT (occurrence: IT)
  Receive Date: 20121127
  Receipt Date: 20121127
  Transmission Date: 20130627
  Serious: Yes (Other)
  Sender: FDA-Public Use
  Company Number: PHHY2012IT107208

PATIENT
  Age: 62 Year
  Sex: Male

DRUGS (1)
  1. AMOXICILLIN\CLAVULANIC ACID [Suspect]
     Dosage: 1 DF, UNK
     Route: 048
     Dates: start: 20121012, end: 20121012

REACTIONS (3)
  - Dyspnoea [Recovering/Resolving]
  - Haemoptysis [Recovering/Resolving]
  - Pharyngeal oedema [Recovering/Resolving]
